FAERS Safety Report 11255989 (Version 1)
Quarter: 2015Q3

REPORT INFORMATION
  Report Type: Spontaneous
  Country: US (occurrence: US)
  Receive Date: 20150709
  Receipt Date: 20150709
  Transmission Date: 20151125
  Serious: No
  Sender: FDA-Public Use
  Company Number: US-PFIZER INC-2015225066

PATIENT
  Age: 53 Year
  Sex: Female
  Weight: 100 kg

DRUGS (3)
  1. MELOXICAM. [Concomitant]
     Active Substance: MELOXICAM
     Indication: ARTHRITIS
     Dosage: 50 MG, DAILY
     Route: 048
  2. GABAPENTIN. [Interacting]
     Active Substance: GABAPENTIN
     Dosage: 300 MG CAPSULES, TWO IN THE MORNING AND TWO AT NIGHT
     Route: 048
  3. LYRICA [Suspect]
     Active Substance: PREGABALIN
     Indication: SCIATIC NERVE NEUROPATHY
     Dosage: 100 MG, 2X/DAY, ONE IN THE MORNING AND ONE AT NIGHT
     Dates: start: 20150608, end: 20150703

REACTIONS (17)
  - Dysphagia [Not Recovered/Not Resolved]
  - Sputum discoloured [Not Recovered/Not Resolved]
  - Oral pain [Not Recovered/Not Resolved]
  - Cough [Recovering/Resolving]
  - Pharyngitis streptococcal [Not Recovered/Not Resolved]
  - Respiratory tract congestion [Not Recovered/Not Resolved]
  - Pharyngeal oedema [Not Recovered/Not Resolved]
  - Headache [Not Recovered/Not Resolved]
  - Productive cough [Recovering/Resolving]
  - Dry mouth [Not Recovered/Not Resolved]
  - Oropharyngeal pain [Not Recovered/Not Resolved]
  - Product quality issue [Unknown]
  - Odynophagia [Not Recovered/Not Resolved]
  - Lymph node pain [Not Recovered/Not Resolved]
  - Ear discomfort [Not Recovered/Not Resolved]
  - Throat tightness [Not Recovered/Not Resolved]
  - Drug interaction [Unknown]
